FAERS Safety Report 9828578 (Version 2)
Quarter: 2014Q1

REPORT INFORMATION
  Report Type: Spontaneous
  Country: IT (occurrence: IT)
  Receive Date: 20140117
  Receipt Date: 20140125
  Transmission Date: 20141002
  Serious: Yes (Hospitalization)
  Sender: FDA-Public Use
  Company Number: IT-VERTEX PHARMACEUTICALS INC-2014-000247

PATIENT
  Age: 43 Year
  Sex: Male

DRUGS (7)
  1. INCIVO [Suspect]
     Indication: CHRONIC HEPATITIS C
     Dosage: 2250 MG, QD
     Route: 048
     Dates: start: 20131209
  2. PEGINTRON [Suspect]
     Indication: CHRONIC HEPATITIS C
     Route: 058
     Dates: start: 20131209, end: 20140110
  3. REBETOL [Suspect]
     Indication: CHRONIC HEPATITIS C
     Dosage: 1200 MG, QD
     Route: 048
     Dates: start: 20131209
  4. SUBUTEX [Concomitant]
     Indication: PRODUCT USED FOR UNKNOWN INDICATION
  5. BIOCHETASI [Concomitant]
     Indication: PRODUCT USED FOR UNKNOWN INDICATION
     Dosage: DOSAGE FORM: EFFERVESCENT GRANULES
  6. OMEPRAZOLE [Concomitant]
     Indication: PRODUCT USED FOR UNKNOWN INDICATION
     Route: 048
  7. PLASIL [Concomitant]
     Indication: PRODUCT USED FOR UNKNOWN INDICATION
     Dosage: DOSAGE FORM: SYRUP

REACTIONS (6)
  - Hyperlipasaemia [Unknown]
  - Hyperamylasaemia [Unknown]
  - Abdominal pain [Unknown]
  - Vomiting [Unknown]
  - Nausea [Unknown]
  - Diarrhoea [Unknown]
